FAERS Safety Report 16666262 (Version 2)
Quarter: 2019Q3

REPORT INFORMATION
  Report Type: Spontaneous
  Country: US (occurrence: US)
  Receive Date: 20190805
  Receipt Date: 20190830
  Transmission Date: 20191004
  Serious: No
  Sender: FDA-Public Use
  Company Number: US-009507513-1907USA004916

PATIENT
  Age: 44 Year
  Sex: Female

DRUGS (2)
  1. NEXPLANON [Suspect]
     Active Substance: ETONOGESTREL
     Dosage: THE NEXPLANON
     Route: 059
     Dates: start: 20190705, end: 20190708
  2. NEXPLANON [Suspect]
     Active Substance: ETONOGESTREL
     Dosage: NEW NEXPLANON
     Route: 059
     Dates: start: 20190708

REACTIONS (6)
  - Complication associated with device [Recovered/Resolved]
  - Complication of device insertion [Recovered/Resolved]
  - Adverse event [Recovered/Resolved]
  - Device deployment issue [Recovered/Resolved]
  - Product use issue [Unknown]
  - Device expulsion [Recovered/Resolved]

NARRATIVE: CASE EVENT DATE: 20190705
